FAERS Safety Report 10948914 (Version 2)
Quarter: 2015Q2

REPORT INFORMATION
  Report Type: Spontaneous
  Country: US (occurrence: US)
  Receive Date: 20150324
  Receipt Date: 20150428
  Transmission Date: 20150821
  Serious: No
  Sender: FDA-Public Use
  Company Number: US-PFIZER INC-2015097095

PATIENT
  Sex: Female

DRUGS (3)
  1. TYLENOL [Suspect]
     Active Substance: ACETAMINOPHEN
     Dosage: UNK
  2. ADVIL [Interacting]
     Active Substance: IBUPROFEN
     Indication: PAIN IN EXTREMITY
     Dosage: 200 MG, EVERY 4 TO 6 HOURS PER DAY
     Dates: start: 19150301
  3. ADVIL [Interacting]
     Active Substance: IBUPROFEN
     Indication: WOUND COMPLICATION

REACTIONS (6)
  - Eructation [Unknown]
  - Dyspepsia [Unknown]
  - Abdominal distension [Unknown]
  - Food interaction [Unknown]
  - Irritable bowel syndrome [Unknown]
  - Drug ineffective [Unknown]
